FAERS Safety Report 10428668 (Version 2)
Quarter: 2015Q1

REPORT INFORMATION
  Report Type: Spontaneous
  Country: CN (occurrence: CN)
  Receive Date: 20140903
  Receipt Date: 20150117
  Transmission Date: 20150720
  Serious: Yes (Other)
  Sender: FDA-Public Use
  Company Number: PHHY2014CN106683

PATIENT
  Age: 41 Year
  Sex: Female

DRUGS (1)
  1. GLIVEC [Suspect]
     Active Substance: IMATINIB MESYLATE
     Indication: ACUTE LYMPHOCYTIC LEUKAEMIA
     Dosage: 400 MG, QD
     Route: 048
     Dates: start: 20140905, end: 20140905

REACTIONS (5)
  - Activated partial thromboplastin time prolonged [Not Recovered/Not Resolved]
  - Nausea [Not Recovered/Not Resolved]
  - Blood fibrinogen decreased [Not Recovered/Not Resolved]
  - Haemorrhagic disorder [Not Recovered/Not Resolved]
  - Vomiting [Not Recovered/Not Resolved]

NARRATIVE: CASE EVENT DATE: 20140905
